FAERS Safety Report 16830107 (Version 1)
Quarter: 2019Q3

REPORT INFORMATION
  Report Type: Spontaneous
  Country: CN (occurrence: CN)
  Receive Date: 20190919
  Receipt Date: 20190919
  Transmission Date: 20191005
  Serious: Yes (Hospitalization)
  Sender: FDA-Public Use
  Company Number: CN-BAXTER-2019BAX018159

PATIENT
  Age: 48 Year
  Sex: Female
  Weight: 71 kg

DRUGS (10)
  1. 5% GLUCOSE  INJECTION [Suspect]
     Active Substance: DEXTROSE
     Indication: MEDICATION DILUTION
     Dosage: 5% GLUCOSE + PIRARUBICIN 50 MG ON DAY1, ONCE IN 14 DAYS [Q14D]
     Route: 041
     Dates: start: 20190809, end: 20190809
  2. ENDOXAN [Suspect]
     Active Substance: CYCLOPHOSPHAMIDE
     Indication: LUNG ADENOCARCINOMA
     Dosage: DOSE RE-INTRODUCED: 0.9% SODIUM CHLORIDE + CYCLOPHOSPHAMIDE
     Route: 041
  3. 5% GLUCOSE  INJECTION [Suspect]
     Active Substance: DEXTROSE
     Dosage: 5% GLUCOSE + PIRARUBICIN  40 MG, ON DAY2, Q14D
     Route: 041
     Dates: start: 20190810, end: 20190810
  4. PIRARUBICIN HYDROCHLORIDE [Suspect]
     Active Substance: PIRARUBICIN HYDROCHLORIDE
     Dosage: DOSE RE-INTRODUCED: 5% GLUCOSE  + PIRARUBICIN, Q14D
     Route: 041
  5. ENDOXAN [Suspect]
     Active Substance: CYCLOPHOSPHAMIDE
     Indication: BREAST CANCER
     Dosage: 0.9% SODIUM CHLORIDE 100 ML + CYCLOPHOSPHAMIDE, ON DAY1
     Route: 041
     Dates: start: 20190809, end: 20190810
  6. 5% GLUCOSE  INJECTION [Suspect]
     Active Substance: DEXTROSE
     Dosage: DOSE RE-INTRODUCED: 5% GLUCOSE + PIRARUBICIN, Q14D
     Route: 041
  7. 0.9% SODIUM CHLORIDE INJECTION [Suspect]
     Active Substance: SODIUM CHLORIDE
     Indication: MEDICATION DILUTION
     Dosage: 0.9% SODIUM CHLORIDE + CYCLOPHOSPHAMIDE 800 MG, ON DAY1
     Route: 041
     Dates: start: 20190809, end: 20190810
  8. PIRARUBICIN HYDROCHLORIDE [Suspect]
     Active Substance: PIRARUBICIN HYDROCHLORIDE
     Indication: BREAST CANCER
     Dosage: 5% GLUCOSE INJECTION 100ML + PIRARUBICIN 50 MG ON DAY1, Q14D
     Route: 041
     Dates: start: 20190809, end: 20190809
  9. 0.9% SODIUM CHLORIDE INJECTION [Suspect]
     Active Substance: SODIUM CHLORIDE
     Dosage: DOSE RE-INTRODUCED: 0.9% SODIUM CHLORIDE + CYCLOPHOSPHAMIDE
     Route: 041
  10. PIRARUBICIN HYDROCHLORIDE [Suspect]
     Active Substance: PIRARUBICIN HYDROCHLORIDE
     Indication: LUNG ADENOCARCINOMA
     Dosage: 5% GLUCOSE INJECTION 100ML + PIRARUBICIN  40 MG ON DAY2, Q14D
     Route: 041
     Dates: start: 20190810, end: 20190810

REACTIONS (1)
  - Hepatic function abnormal [Recovering/Resolving]

NARRATIVE: CASE EVENT DATE: 20190822
